FAERS Safety Report 8324519-6 (Version None)
Quarter: 2012Q2

REPORT INFORMATION
  Report Type: 
  Country: None (occurrence: None)
  Receive Date: 20120430
  Receipt Date: 20120430
  Transmission Date: 20120825
  Serious: Yes (Hospitalization)
  Sender: FDA-Public Use
  Company Number: None

PATIENT
  Sex: Male
  Weight: 87.7 kg

DRUGS (1)
  1. INTRON A [Suspect]
     Dosage: 57 MU
     Dates: end: 20120323

REACTIONS (6)
  - DIASTOLIC DYSFUNCTION [None]
  - FOOD AVERSION [None]
  - TRANSIENT ISCHAEMIC ATTACK [None]
  - DEPRESSION [None]
  - HYPONATRAEMIA [None]
  - POLYDIPSIA [None]
